FAERS Safety Report 11279693 (Version 2)
Quarter: 2015Q3

REPORT INFORMATION
  Report Type: Spontaneous
  Country: US (occurrence: US)
  Receive Date: 20150717
  Receipt Date: 20150831
  Transmission Date: 20151125
  Serious: No
  Sender: FDA-Public Use
  Company Number: US-VIIV HEALTHCARE LIMITED-US2015102097

PATIENT
  Sex: Female
  Weight: 76.64 kg

DRUGS (2)
  1. ATRIPLA [Concomitant]
     Active Substance: EFAVIRENZ\EMTRICITABINE\TENOFOVIR DISOPROXIL FUMARATE
  2. TRIUMEQ [Suspect]
     Active Substance: ABACAVIR SULFATE\DOLUTEGRAVIR SODIUM\LAMIVUDINE
     Indication: HIV INFECTION
     Dosage: UNK
     Route: 048
     Dates: end: 20150428

REACTIONS (6)
  - Hypersensitivity [Recovered/Resolved]
  - Somnolence [Unknown]
  - Headache [Unknown]
  - Ill-defined disorder [Recovered/Resolved]
  - Nausea [Unknown]
  - Diarrhoea [Unknown]
